FAERS Safety Report 4533960-9 (Version None)
Quarter: 2004Q4

REPORT INFORMATION
  Report Type: 
  Country: None (occurrence: None)
  Receive Date: 20041221
  Receipt Date: 20041221
  Transmission Date: 20050328
  Serious: Yes (Other)
  Sender: FDA-Public Use
  Company Number: None

PATIENT
  Age: 39 Year
  Sex: Female
  Weight: 61.2356 kg

DRUGS (1)
  1. LAMISIL [Suspect]
     Indication: ONYCHOMYCOSIS
     Dosage: 250MG  DAILY ORAL
     Route: 048
     Dates: start: 20041004, end: 20041219

REACTIONS (3)
  - DIARRHOEA [None]
  - TREATMENT NONCOMPLIANCE [None]
  - VIRAL INFECTION [None]
